FAERS Safety Report 11097910 (Version 1)
Quarter: 2015Q2

REPORT INFORMATION
  Report Type: Spontaneous
  Country: US (occurrence: US)
  Receive Date: 20150507
  Receipt Date: 20150507
  Transmission Date: 20150821
  Serious: No
  Sender: FDA-Public Use
  Company Number: US-PFIZER INC-2015151444

PATIENT
  Age: 14 Year
  Sex: Male

DRUGS (1)
  1. GENOTROPIN [Suspect]
     Active Substance: SOMATROPIN
     Indication: BODY HEIGHT BELOW NORMAL
     Dosage: UNK, CYCLIC (INJECTING 2 MG EVERY OTHER DAY WITH 2.2 MG ON OPPOSITE DAYS, 7 DAYS PER WEEK)

REACTIONS (2)
  - Fall [Unknown]
  - Injection site pain [Unknown]
